FAERS Safety Report 20563129 (Version 1)
Quarter: 2022Q1

REPORT INFORMATION
  Report Type: Spontaneous
  Country: FR (occurrence: FR)
  Receive Date: 20220307
  Receipt Date: 20220307
  Transmission Date: 20220423
  Serious: Yes (Death)
  Sender: FDA-Public Use
  Company Number: None

PATIENT
  Age: 76 Year
  Sex: Female
  Weight: 79 kg

DRUGS (8)
  1. RISPERDAL [Suspect]
     Active Substance: RISPERIDONE
     Indication: Product used for unknown indication
     Route: 048
     Dates: start: 20160901, end: 20180925
  2. MIANSERIN HYDROCHLORIDE [Suspect]
     Active Substance: MIANSERIN HYDROCHLORIDE
     Indication: Mixed anxiety and depressive disorder
     Route: 048
     Dates: end: 20181025
  3. DUTASTERIDE\TAMSULOSIN [Suspect]
     Active Substance: DUTASTERIDE\TAMSULOSIN
     Indication: Product used for unknown indication
     Route: 048
     Dates: start: 20181025
  4. ESOMEPRAZOLE MAGNESIUM [Suspect]
     Active Substance: ESOMEPRAZOLE MAGNESIUM
     Indication: Product used for unknown indication
     Route: 048
     Dates: start: 20181025
  5. CANDESARTAN CILEXETIL [Suspect]
     Active Substance: CANDESARTAN CILEXETIL
     Indication: Hypertension
     Dosage: START DATE //2018
     Route: 048
     Dates: end: 20181025
  6. KARDEGIC [Suspect]
     Active Substance: ASPIRIN DL-LYSINE
     Indication: Product used for unknown indication
     Route: 048
     Dates: end: 20181025
  7. CYMBALTA [Suspect]
     Active Substance: DULOXETINE HYDROCHLORIDE
     Indication: Mixed anxiety and depressive disorder
     Route: 048
     Dates: start: 20160901, end: 20180925
  8. OXAZEPAM [Suspect]
     Active Substance: OXAZEPAM
     Indication: Anxiety disorder
     Route: 048
     Dates: start: 20160715, end: 20180925

REACTIONS (2)
  - Acute kidney injury [Fatal]
  - Fall [Fatal]

NARRATIVE: CASE EVENT DATE: 20181024
